FAERS Safety Report 5794937-9 (Version None)
Quarter: 2008Q2

REPORT INFORMATION
  Report Type: 
  Country: None (occurrence: None)
  Receive Date: 20080627
  Receipt Date: 20080627
  Transmission Date: 20081010
  Serious: Yes (Other)
  Sender: FDA-Public Use
  Company Number: None

PATIENT
  Age: 57 Year
  Sex: Male
  Weight: 90.7194 kg

DRUGS (2)
  1. VYTORIN [Suspect]
     Indication: BLOOD CHOLESTEROL
     Dosage: 10/20 ONE A DAY PO
     Route: 048
     Dates: start: 20060807, end: 20061010
  2. VYTORIN [Suspect]
     Indication: HYPERTENSION
     Dosage: 10/20 ONE A DAY PO
     Route: 048
     Dates: start: 20060807, end: 20061010

REACTIONS (14)
  - ABDOMINAL PAIN UPPER [None]
  - BONE PAIN [None]
  - CHEST PAIN [None]
  - DRUG HYPERSENSITIVITY [None]
  - ERECTILE DYSFUNCTION [None]
  - EYE INFLAMMATION [None]
  - FATIGUE [None]
  - FLATULENCE [None]
  - HAEMATOMA [None]
  - INFLUENZA LIKE ILLNESS [None]
  - INJURY [None]
  - MYALGIA [None]
  - SLEEP DISORDER [None]
  - THROAT IRRITATION [None]
